FAERS Safety Report 9568727 (Version 1)
Quarter: 2013Q3

REPORT INFORMATION
  Report Type: Spontaneous
  Country: US (occurrence: US)
  Receive Date: 20130930
  Receipt Date: 20130930
  Transmission Date: 20140515
  Serious: No
  Sender: FDA-Public Use
  Company Number: US-AMGEN-USASP2013060830

PATIENT
  Age: 51 Year
  Sex: Female
  Weight: 92.97 kg

DRUGS (7)
  1. ENBREL [Suspect]
     Indication: PRODUCT USED FOR UNKNOWN INDICATION
     Dosage: 50 MG, QWK
     Route: 058
     Dates: end: 201305
  2. PREDNISONE [Concomitant]
     Dosage: 2.5 MG, UNK
  3. VOLTAREN                           /00372301/ [Concomitant]
     Dosage: 1 %, UNK
  4. FOLIC ACID [Concomitant]
     Dosage: 1 MG, UNK
  5. MULTIVITAMINS, PLAIN [Concomitant]
     Dosage: UNK
  6. BLACK COHOSH                       /01456801/ [Concomitant]
     Dosage: 160 MG, UNK
  7. METHOTREXATE [Concomitant]
     Dosage: 1 G, UNK

REACTIONS (1)
  - Drug ineffective [Unknown]
